FAERS Safety Report 13889695 (Version 1)
Quarter: 2017Q3

REPORT INFORMATION
  Report Type: Spontaneous
  Country: US (occurrence: None)
  Receive Date: 20170821
  Receipt Date: 20170821
  Transmission Date: 20171127
  Serious: Yes (Other)
  Sender: FDA-Public Use
  Company Number: None

PATIENT
  Sex: Female
  Weight: 43.54 kg

DRUGS (1)
  1. PARAGARD T 380A [Suspect]
     Active Substance: COPPER
     Dates: start: 20160128, end: 20170817

REACTIONS (6)
  - Metal poisoning [None]
  - Wrist surgery [None]
  - Alopecia [None]
  - Depression [None]
  - Tenosynovitis [None]
  - Vaginal discharge [None]

NARRATIVE: CASE EVENT DATE: 20170810
